FAERS Safety Report 5650466-4 (Version None)
Quarter: 2008Q1

REPORT INFORMATION
  Report Type: 
  Country: None (occurrence: None)
  Receive Date: 20080304
  Receipt Date: 20080304
  Transmission Date: 20080703
  Serious: Yes (Death)
  Sender: FDA-Public Use
  Company Number: None

PATIENT
  Sex: Male
  Weight: 74.8435 kg

DRUGS (3)
  1. XELODA [Suspect]
     Indication: ADENOCARCINOMA
     Dosage: 500MG TABLET 5 PER DAY PO/ORAL
     Route: 048
     Dates: start: 20080204
  2. XELODA [Suspect]
     Indication: ADENOCARCINOMA
     Dosage: 500MG TABLET 5 PER DAY PO/ORAL
     Route: 048
     Dates: start: 20080205
  3. XELODA [Suspect]
     Indication: ADENOCARCINOMA
     Dosage: 500MG TABLET 5 PER DAY PO/ORAL
     Route: 048
     Dates: start: 20080206

REACTIONS (6)
  - DEHYDRATION [None]
  - DIARRHOEA [None]
  - DRUG TOXICITY [None]
  - FOOT AND MOUTH DISEASE [None]
  - GASTROINTESTINAL PAIN [None]
  - SWOLLEN TONGUE [None]
